FAERS Safety Report 4919347-5 (Version None)
Quarter: 2006Q1

REPORT INFORMATION
  Report Type: 
  Country: None (occurrence: None)
  Receive Date: 20060113
  Receipt Date: 20051102
  Transmission Date: 20060701
  Serious: No
  Sender: FDA-Public Use
  Company Number: 2005SP003811

PATIENT
  Age: 63 Year
  Sex: Male
  Weight: 81.6475 kg

DRUGS (2)
  1. LUNESTA [Suspect]
     Dosage: 2 MG;HS;ORAL, 3 MG;HS;ORAL
     Route: 048
     Dates: start: 20050401, end: 20050401
  2. LUNESTA [Suspect]
     Dosage: 2 MG;HS;ORAL, 3 MG;HS;ORAL
     Route: 048
     Dates: start: 20050401

REACTIONS (2)
  - DRUG INEFFECTIVE [None]
  - INSOMNIA [None]
